FAERS Safety Report 15851389 (Version 1)
Quarter: 2019Q1

REPORT INFORMATION
  Report Type: Spontaneous
  Country: FR (occurrence: FR)
  Receive Date: 20190122
  Receipt Date: 20190122
  Transmission Date: 20190417
  Serious: Yes (Hospitalization, Other)
  Sender: FDA-Public Use
  Company Number: FR-TEVA-2019-FR-1002186

PATIENT
  Age: 65 Year
  Sex: Male

DRUGS (17)
  1. TOPALGIC (TRAMADOL HYDROCHLORIDE) [Suspect]
     Active Substance: TRAMADOL HYDROCHLORIDE
     Indication: PAIN
     Dosage: UNK UNK,PRN
     Route: 048
     Dates: start: 20120710, end: 20120712
  2. HEPARIN CALCIUM [Concomitant]
     Active Substance: HEPARIN CALCIUM
     Dosage: UNK
     Route: 051
     Dates: start: 20120710
  3. TRAMADOL HYDROCHLORIDE. [Suspect]
     Active Substance: TRAMADOL HYDROCHLORIDE
     Indication: PAIN
     Dosage: 50 MILLIGRAM DAILY;
     Route: 042
     Dates: start: 20120626, end: 20120630
  4. OFLOCET [OFLOXACIN] [Concomitant]
     Active Substance: OFLOXACIN
     Indication: PROSTATITIS
     Dosage: UNK
     Dates: start: 20120710
  5. ATRACURIUM [Concomitant]
     Active Substance: ATRACURIUM
     Dosage: UNK
     Route: 065
     Dates: start: 20120626, end: 20120626
  6. XYLOCAINE [Concomitant]
     Active Substance: LIDOCAINE HYDROCHLORIDE
     Dosage: UNK
     Dates: start: 20120626, end: 20120626
  7. PHOSPHORIC ACID SODIUM [Concomitant]
     Dosage: 6 G,UNK
     Dates: start: 20120626, end: 20120626
  8. KETAMINE [Concomitant]
     Active Substance: KETAMINE
     Dosage: UNK
     Dates: start: 20120626, end: 20120626
  9. PROPOFOL. [Concomitant]
     Active Substance: PROPOFOL
     Dosage: UNK
     Dates: start: 20120626, end: 20120626
  10. TRAMADOL W/PARACETAMOL [Suspect]
     Active Substance: ACETAMINOPHEN\TRAMADOL
     Indication: PAIN
     Dosage: 4 DOSAGE FORMS DAILY;
     Route: 048
     Dates: start: 20120704, end: 20120710
  11. ESOMEPRAZOLE. [Suspect]
     Active Substance: ESOMEPRAZOLE MAGNESIUM
     Indication: PRODUCT USED FOR UNKNOWN INDICATION
     Dosage: 40 MILLIGRAM DAILY;
     Route: 048
     Dates: start: 20120704, end: 20120710
  12. ESOMEPRAZOLE. [Suspect]
     Active Substance: ESOMEPRAZOLE MAGNESIUM
     Dosage: 40 MG,QD
     Route: 051
     Dates: start: 20120703, end: 20120703
  13. TINZAPARIN SODIUM [Suspect]
     Active Substance: TINZAPARIN SODIUM
     Indication: PRODUCT USED FOR UNKNOWN INDICATION
     Dosage: 1 DOSAGE FORMS DAILY; 1 DF,QD
     Route: 058
     Dates: start: 20120704, end: 20120710
  14. NEOSTIGMINE. [Concomitant]
     Active Substance: NEOSTIGMINE METHYLSULFATE
     Dosage: UNK
     Dates: start: 20120626, end: 20120626
  15. ATROPINE. [Concomitant]
     Active Substance: ATROPINE
     Dosage: UNK
     Dates: start: 20120626, end: 20120626
  16. SUFENTA [Concomitant]
     Active Substance: SUFENTANIL CITRATE
     Dosage: UNK
     Dates: start: 20120626, end: 20120626
  17. LOVENOX [Concomitant]
     Active Substance: ENOXAPARIN SODIUM
     Dosage: 4000 IU (INTERNATIONAL UNIT) DAILY; 4000 IU,QD
     Route: 051
     Dates: start: 20120627, end: 20120704

REACTIONS (3)
  - Eosinophilia [Recovering/Resolving]
  - Rash pustular [Recovering/Resolving]
  - Erythema multiforme [Recovering/Resolving]

NARRATIVE: CASE EVENT DATE: 201207
